FAERS Safety Report 11361857 (Version 1)
Quarter: 2015Q3

REPORT INFORMATION
  Report Type: Spontaneous
  Country: CA (occurrence: CA)
  Receive Date: 20150810
  Receipt Date: 20150810
  Transmission Date: 20151125
  Serious: Yes (Death)
  Sender: FDA-Public Use
  Company Number: CA-PFIZER INC-2015201103

PATIENT
  Age: 62 Year
  Sex: Male

DRUGS (1)
  1. CRIZOTINIB [Suspect]
     Active Substance: CRIZOTINIB
     Indication: NON-SMALL CELL LUNG CANCER STAGE IV
     Dosage: 1ST LINE THERAPY
     Dates: start: 20150526, end: 2015

REACTIONS (3)
  - Death [Fatal]
  - Non-small cell lung cancer stage IV [Unknown]
  - Disease progression [Unknown]

NARRATIVE: CASE EVENT DATE: 2015
